FAERS Safety Report 16422313 (Version 2)
Quarter: 2019Q2

REPORT INFORMATION
  Report Type: Report from Study
  Country: IT (occurrence: IT)
  Receive Date: 20190612
  Receipt Date: 20190621
  Transmission Date: 20190711
  Serious: Yes (Hospitalization)
  Sender: FDA-Public Use
  Company Number: IT-TEVA-2019-IT-1060775

PATIENT
  Age: 13 Year
  Sex: Female
  Weight: 75 kg

DRUGS (4)
  1. AMLODIPINA DOC [Suspect]
     Active Substance: AMLODIPINE BESYLATE
     Route: 048
  2. RIVOTRIL [Suspect]
     Active Substance: CLONAZEPAM
  3. OKI 80 MG GRANULATO PER SOLUZIONE ORALE [Suspect]
     Active Substance: KETOPROFEN LYSINE
     Route: 048
  4. PARACETAMOL [Suspect]
     Active Substance: ACETAMINOPHEN
     Route: 048

REACTIONS (2)
  - Abdominal pain upper [Recovering/Resolving]
  - Vomiting [Recovering/Resolving]

NARRATIVE: CASE EVENT DATE: 20190524
